FAERS Safety Report 6010077-8 (Version None)
Quarter: 2008Q4

REPORT INFORMATION
  Report Type: 
  Country: None (occurrence: None)
  Receive Date: 20081218
  Receipt Date: 20081208
  Transmission Date: 20090506
  Serious: Yes (Other)
  Sender: FDA-Public Use
  Company Number: US-ABBOTT-08P-163-0491685-00

PATIENT
  Sex: Female

DRUGS (6)
  1. SYNTHROID [Suspect]
     Indication: THYROTOXIC CRISIS
     Route: 048
     Dates: start: 20060101, end: 20080101
  2. SYNTHROID [Suspect]
     Indication: BASEDOW'S DISEASE
     Route: 048
     Dates: start: 20080101
  3. SYNTHROID [Suspect]
     Indication: RADIOACTIVE IODINE THERAPY
  4. PREDNISONE TAB [Suspect]
     Indication: VISUAL ACUITY REDUCED
     Dates: end: 20080601
  5. METHYLPREDNISOLONE SODIUM SUCCINATE [Concomitant]
     Indication: DRUG USE FOR UNKNOWN INDICATION
  6. ACETYLSALICYLIC ACID [Concomitant]
     Indication: DRUG USE FOR UNKNOWN INDICATION

REACTIONS (11)
  - ARTHROPATHY [None]
  - BLOOD THYROID STIMULATING HORMONE DECREASED [None]
  - BLOOD THYROID STIMULATING HORMONE INCREASED [None]
  - FALL [None]
  - LETHARGY [None]
  - LOW DENSITY LIPOPROTEIN INCREASED [None]
  - LOWER LIMB FRACTURE [None]
  - MUSCLE INJURY [None]
  - OSTEOPENIA [None]
  - PAIN [None]
  - VISUAL ACUITY REDUCED [None]
